FAERS Safety Report 8244369-9 (Version None)
Quarter: 2012Q1

REPORT INFORMATION
  Report Type: 
  Country: None (occurrence: None)
  Receive Date: 20120329
  Receipt Date: 20120323
  Transmission Date: 20120608
  Serious: Yes (Other)
  Sender: FDA-Public Use
  Company Number: US-JNJFOC-20120313201

PATIENT
  Age: 13 Year
  Sex: Male
  Weight: 48.54 kg

DRUGS (5)
  1. ZYRTEC [Suspect]
     Route: 048
  2. PULMICORT [Concomitant]
     Indication: ASTHMA
     Route: 065
  3. NASACORT SPRAY [Concomitant]
     Indication: MULTIPLE ALLERGIES
     Route: 065
  4. NASACORT SPRAY [Concomitant]
     Indication: ASTHMA
     Route: 065
  5. ZYRTEC [Suspect]
     Indication: MULTIPLE ALLERGIES
     Route: 048

REACTIONS (1)
  - PSORIASIS [None]
